FAERS Safety Report 5753158-6 (Version None)
Quarter: 2008Q2

REPORT INFORMATION
  Report Type: 
  Country: None (occurrence: None)
  Receive Date: 20080530
  Receipt Date: 20080516
  Transmission Date: 20081010
  Serious: No
  Sender: FDA-Public Use
  Company Number: US-BAYER-200821425NA

PATIENT
  Sex: Male
  Weight: 79 kg

DRUGS (3)
  1. LEUKINE [Suspect]
     Indication: PROSTATE CANCER
     Route: 058
     Dates: start: 20080301
  2. LEUKINE [Suspect]
     Route: 058
     Dates: start: 20080402
  3. REVLIMID [Concomitant]
     Indication: PROSTATE CANCER

REACTIONS (1)
  - DRUG INEFFECTIVE [None]
